FAERS Safety Report 16413775 (Version 2)
Quarter: 2019Q4

REPORT INFORMATION
  Report Type: Spontaneous
  Country: CA (occurrence: CA)
  Receive Date: 20190611
  Receipt Date: 20191014
  Transmission Date: 20200122
  Serious: Yes (Death, Life-Threatening, Hospitalization, Other)
  Sender: FDA-Public Use
  Company Number: CA-SA-2019SA154969

PATIENT
  Age: 74 Year
  Sex: Male

DRUGS (6)
  1. CRESTOR [Concomitant]
     Active Substance: ROSUVASTATIN CALCIUM
     Indication: BLOOD CHOLESTEROL
     Dosage: UNK UNK, UNK
     Route: 065
  2. ACETYLSALICYLIC ACID [Interacting]
     Active Substance: ASPIRIN
     Indication: TRANSIENT ISCHAEMIC ATTACK
  3. ACETYLSALICYLIC ACID [Interacting]
     Active Substance: ASPIRIN
     Indication: STENT PLACEMENT
     Dosage: UNK UNK, UNK
     Route: 065
  4. CLOPIDOGREL BISULFATE. [Interacting]
     Active Substance: CLOPIDOGREL BISULFATE
     Indication: TRANSIENT ISCHAEMIC ATTACK
  5. HYDROCHLOROTHIAZIDE. [Concomitant]
     Active Substance: HYDROCHLOROTHIAZIDE
     Indication: BLOOD PRESSURE MEASUREMENT
     Dosage: UNK UNK, UNK
     Route: 065
  6. CLOPIDOGREL BISULFATE. [Suspect]
     Active Substance: CLOPIDOGREL BISULFATE
     Indication: STENT PLACEMENT
     Dosage: UNK UNK, UNK
     Route: 065

REACTIONS (10)
  - Subarachnoid haemorrhage [Unknown]
  - Labelled drug-drug interaction medication error [Fatal]
  - Product administration error [Unknown]
  - Contusion [Fatal]
  - Head injury [Fatal]
  - Subdural haematoma [Fatal]
  - Craniocerebral injury [Unknown]
  - Fall [Fatal]
  - Subdural haemorrhage [Fatal]
  - Traumatic haematoma [Fatal]
